FAERS Safety Report 8354374-X (Version None)
Quarter: 2012Q2

REPORT INFORMATION
  Report Type: 
  Country: None (occurrence: None)
  Receive Date: 20120511
  Receipt Date: 20120504
  Transmission Date: 20120825
  Serious: Yes (Hospitalization)
  Sender: FDA-Public Use
  Company Number: IT-ABBOTT-12P-083-0932176-00

PATIENT
  Sex: Male

DRUGS (7)
  1. LASIX [Concomitant]
     Indication: PRODUCT USED FOR UNKNOWN INDICATION
  2. COUMADIN [Suspect]
     Indication: PROPHYLAXIS
     Route: 048
     Dates: start: 20091201, end: 20120420
  3. BISOPROPOLO EMIFUMARATO [Concomitant]
     Indication: PRODUCT USED FOR UNKNOWN INDICATION
  4. CLARITHROMYCIN [Suspect]
     Indication: BRONCHITIS
     Route: 048
     Dates: start: 20120413, end: 20120420
  5. PANTOPRAZOLE [Concomitant]
     Indication: PRODUCT USED FOR UNKNOWN INDICATION
  6. LORAZEPAM [Concomitant]
     Indication: PRODUCT USED FOR UNKNOWN INDICATION
  7. ALLOPURINOL [Suspect]
     Indication: HYPERURICAEMIA
     Route: 048
     Dates: start: 20120101, end: 20120420

REACTIONS (1)
  - INTERNATIONAL NORMALISED RATIO INCREASED [None]
